FAERS Safety Report 13570963 (Version 1)
Quarter: 2017Q2

REPORT INFORMATION
  Report Type: Spontaneous
  Country: SE (occurrence: SE)
  Receive Date: 20170523
  Receipt Date: 20170523
  Transmission Date: 20170830
  Serious: Yes (Other)
  Sender: FDA-Public Use
  Company Number: SE-JNJFOC-20170515605

PATIENT
  Age: 25 Year
  Sex: Male

DRUGS (2)
  1. IPREN [Suspect]
     Active Substance: IBUPROFEN
     Indication: PRODUCT USED FOR UNKNOWN INDICATION
     Dosage: ONE TABLET OF IPREN (IBUPROFEN) 200 MG OR 400 MG
     Route: 048
  2. IPREN [Suspect]
     Active Substance: IBUPROFEN
     Route: 048

REACTIONS (2)
  - Urticaria [Recovered/Resolved]
  - Blood pressure decreased [Recovered/Resolved]

NARRATIVE: CASE EVENT DATE: 20170423
